FAERS Safety Report 9625521 (Version 1)
Quarter: 2013Q4

REPORT INFORMATION
  Report Type: Spontaneous
  Country: US (occurrence: US)
  Receive Date: 20131016
  Receipt Date: 20131016
  Transmission Date: 20140711
  Serious: Yes (Death, Hospitalization)
  Sender: FDA-Public Use
  Company Number: US-BAYER-2013-122845

PATIENT
  Sex: Female

DRUGS (1)
  1. STIVARGA [Suspect]
     Indication: COLORECTAL CANCER METASTATIC
     Dosage: TOTAL DAILY DOSE: 160 MG (3 WK ON 1 WK OFF)
     Route: 048

REACTIONS (3)
  - Lung disorder [Recovered/Resolved]
  - Myocardial infarction [Recovered/Resolved]
  - Colorectal cancer [Fatal]
